FAERS Safety Report 16006750 (Version 1)
Quarter: 2019Q1

REPORT INFORMATION
  Report Type: Spontaneous
  Country: AU (occurrence: AU)
  Receive Date: 20190226
  Receipt Date: 20190226
  Transmission Date: 20190418
  Serious: Yes (Other)
  Sender: FDA-Public Use
  Company Number: AU-AMREGENT-20190306

PATIENT
  Age: 85 Year
  Sex: Female

DRUGS (1)
  1. FERINJECT [Suspect]
     Active Substance: FERRIC CARBOXYMALTOSE
     Dosage: UNKNOWN
     Route: 041
     Dates: start: 20180829, end: 20180829

REACTIONS (8)
  - Tremor [Recovered/Resolved]
  - Oxygen saturation decreased [Unknown]
  - Nausea [Unknown]
  - Somnolence [Unknown]
  - Heart rate increased [Unknown]
  - Body temperature increased [Unknown]
  - Peripheral circulatory failure [Unknown]
  - Vomiting [Unknown]

NARRATIVE: CASE EVENT DATE: 2018
